FAERS Safety Report 8098355-2 (Version None)
Quarter: 2012Q1

REPORT INFORMATION
  Report Type: 
  Country: None (occurrence: None)
  Receive Date: 20120131
  Receipt Date: 20120123
  Transmission Date: 20120608
  Serious: Yes (Hospitalization)
  Sender: FDA-Public Use
  Company Number: US-US-EMD SERONO, INC.-7108638

PATIENT
  Sex: Female
  Weight: 79 kg

DRUGS (5)
  1. AMINOPYRIDINE [Concomitant]
     Indication: MULTIPLE SCLEROSIS
  2. BACLOFEN [Concomitant]
     Indication: MULTIPLE SCLEROSIS
  3. BUPROPION HYDROCHLORIDE [Concomitant]
     Indication: DEPRESSION
  4. REBIF [Suspect]
     Indication: MULTIPLE SCLEROSIS
     Route: 058
     Dates: start: 20030131
  5. GABAPENTIN [Concomitant]
     Indication: MULTIPLE SCLEROSIS

REACTIONS (3)
  - FALL [None]
  - RIB FRACTURE [None]
  - CLAVICLE FRACTURE [None]
